FAERS Safety Report 11003272 (Version 1)
Quarter: 2015Q2

REPORT INFORMATION
  Report Type: Spontaneous
  Country: IN (occurrence: IN)
  Receive Date: 20150409
  Receipt Date: 20150409
  Transmission Date: 20150821
  Serious: Yes (Other)
  Sender: FDA-Public Use
  Company Number: IN-MACLEODS PHARMACEUTICALS US LTD-MAC2015001681

PATIENT

DRUGS (1)
  1. AMLODIPINE BESYLATE TABLET [Suspect]
     Active Substance: AMLODIPINE BESYLATE
     Indication: HYPERTENSION
     Dosage: 5 MG, QD
     Route: 048

REACTIONS (9)
  - Lichen planus [Recovering/Resolving]
  - Rash erythematous [Recovering/Resolving]
  - Gingival hyperplasia [Recovering/Resolving]
  - Supernumerary teeth [Recovering/Resolving]
  - Gingival bleeding [Recovering/Resolving]
  - Gingivitis [Recovering/Resolving]
  - Periodontitis [Recovering/Resolving]
  - Gingival swelling [Recovering/Resolving]
  - Breath odour [Recovering/Resolving]
